FAERS Safety Report 9045818 (Version 1)
Quarter: 2013Q1

REPORT INFORMATION
  Report Type: Report from Study
  Country: US (occurrence: US)
  Receive Date: 20130201
  Receipt Date: 20130201
  Transmission Date: 20140127
  Serious: No
  Sender: FDA-Public Use
  Company Number: US-ABBOTT-12P-163-1017792-00

PATIENT
  Age: 32 Year
  Sex: Female

DRUGS (5)
  1. HUMIRA [Suspect]
     Indication: PSORIASIS
     Dates: start: 20121024
  2. HUMIRA [Suspect]
     Dates: start: 20121108, end: 20121108
  3. CLOBETASOL CREAM [Concomitant]
     Indication: PSORIASIS
  4. CLOBETASOL FOAM [Concomitant]
     Indication: PSORIASIS
  5. PROTOPIC [Concomitant]
     Indication: PSORIASIS

REACTIONS (4)
  - Panic attack [Recovered/Resolved]
  - Headache [Recovered/Resolved]
  - Migraine [Recovered/Resolved]
  - Nausea [Recovered/Resolved]
